FAERS Safety Report 21580010 (Version 2)
Quarter: 2022Q4

REPORT INFORMATION
  Report Type: Report from Study
  Country: US (occurrence: US)
  Receive Date: 20221110
  Receipt Date: 20221121
  Transmission Date: 20230112
  Serious: Yes (Death, Other)
  Sender: FDA-Public Use
  Company Number: US-GILEAD-2022-0604425

PATIENT
  Age: 57 Year
  Sex: Female
  Weight: 46.3 kg

DRUGS (1)
  1. SACITUZUMAB GOVITECAN [Suspect]
     Active Substance: SACITUZUMAB GOVITECAN
     Indication: Triple negative breast cancer
     Dosage: UNK
     Route: 065
     Dates: start: 20220921, end: 20220921

REACTIONS (1)
  - Hypoxia [Fatal]
